FAERS Safety Report 4886721-5 (Version None)
Quarter: 2006Q1

REPORT INFORMATION
  Report Type: 
  Country: None (occurrence: None)
  Receive Date: 20060120
  Receipt Date: 20051229
  Transmission Date: 20060701
  Serious: Yes (Other)
  Sender: FDA-Public Use
  Company Number: JP-ROCHE-430282

PATIENT
  Age: 78 Year
  Sex: Male

DRUGS (5)
  1. PANALDINE [Suspect]
     Indication: ACUTE MYOCARDIAL INFARCTION
     Dosage: OTHER INDICATIONS: THROMBOSIS PROPHYLAXIS AND STENT PLACEMENT.
     Route: 048
     Dates: start: 20051019, end: 20051130
  2. ASPIRIN [Concomitant]
     Indication: ACUTE MYOCARDIAL INFARCTION
     Route: 048
     Dates: start: 20051019
  3. LIPITOR [Concomitant]
     Indication: ACUTE MYOCARDIAL INFARCTION
     Route: 048
     Dates: start: 20051019, end: 20051127
  4. SELOKEN [Concomitant]
     Indication: HYPERTENSION
     Route: 048
     Dates: start: 20051029, end: 20051130
  5. GASTER [Concomitant]
     Route: 048
     Dates: start: 20051110, end: 20051125

REACTIONS (4)
  - CARDIAC FAILURE [None]
  - CYTOLYTIC HEPATITIS [None]
  - HEPATIC FUNCTION ABNORMAL [None]
  - HEPATITIS CHOLESTATIC [None]
